FAERS Safety Report 9249719 (Version 8)
Quarter: 2014Q2

REPORT INFORMATION
  Report Type: Report from Study
  Country: US (occurrence: US)
  Receive Date: 20130423
  Receipt Date: 20140528
  Transmission Date: 20141212
  Serious: Yes (Hospitalization, Other)
  Sender: FDA-Public Use
  Company Number: US-ROCHE-1204639

PATIENT
  Age: 39 Year
  Sex: Female
  Weight: 128.48 kg

DRUGS (32)
  1. OMALIZUMAB [Suspect]
     Indication: ASTHMA
     Dosage: MOST RECENT DOSE : 25/OCT/2013
     Route: 058
     Dates: start: 20120611
  2. OMALIZUMAB [Suspect]
     Route: 058
     Dates: start: 20120712
  3. OMALIZUMAB [Suspect]
     Route: 058
     Dates: start: 20120816
  4. OMALIZUMAB [Suspect]
     Route: 058
     Dates: start: 20120906
  5. OMALIZUMAB [Suspect]
     Route: 058
     Dates: start: 20121001
  6. OMALIZUMAB [Suspect]
     Route: 058
     Dates: start: 20121101
  7. OMALIZUMAB [Suspect]
     Route: 058
     Dates: start: 20121129
  8. OMALIZUMAB [Suspect]
     Route: 058
     Dates: start: 20121229
  9. OMALIZUMAB [Suspect]
     Route: 058
     Dates: start: 20130124
  10. OMALIZUMAB [Suspect]
     Dosage: DATE OF LAST DOSE OF OMALIZUMAB WAS 11 MAR 2013
     Route: 058
     Dates: start: 20130214
  11. OMALIZUMAB [Suspect]
     Route: 058
     Dates: start: 201107
  12. OMALIZUMAB [Suspect]
     Route: 058
     Dates: start: 20130429
  13. OMALIZUMAB [Suspect]
     Route: 058
     Dates: start: 20130606
  14. OMALIZUMAB [Suspect]
     Route: 058
     Dates: start: 20130801
  15. OMALIZUMAB [Suspect]
     Route: 058
     Dates: start: 20130826
  16. OMALIZUMAB [Suspect]
     Route: 058
     Dates: start: 20130927
  17. OMALIZUMAB [Suspect]
     Route: 058
     Dates: start: 20130708
  18. OMALIZUMAB [Suspect]
     Route: 058
     Dates: start: 20131031
  19. OMALIZUMAB [Suspect]
     Route: 058
     Dates: start: 20131125
  20. OMALIZUMAB [Suspect]
     Route: 058
     Dates: start: 20131223
  21. OMALIZUMAB [Suspect]
     Route: 058
     Dates: start: 20140120
  22. OMALIZUMAB [Suspect]
     Route: 058
     Dates: start: 20140224
  23. OMALIZUMAB [Suspect]
     Route: 058
     Dates: start: 20140403
  24. OMALIZUMAB [Suspect]
     Route: 058
     Dates: start: 20140424
  25. OMALIZUMAB [Suspect]
     Route: 065
     Dates: start: 20140501
  26. NEXIUM [Concomitant]
     Indication: DYSPEPSIA
  27. NEXIUM [Concomitant]
     Indication: GASTROOESOPHAGEAL REFLUX DISEASE
  28. SYNTHROID [Concomitant]
     Indication: HYPOTHYROIDISM
     Route: 048
  29. SYMBICORT [Concomitant]
     Indication: ASTHMA
     Route: 065
  30. PROVENTIL [Concomitant]
     Indication: ASTHMA
     Route: 065
  31. FOLIC ACID [Concomitant]
  32. VICODIN [Concomitant]
     Indication: PAIN
     Route: 065
     Dates: start: 20130407

REACTIONS (3)
  - Cholestasis of pregnancy [Recovered/Resolved]
  - Asthma [Recovered/Resolved]
  - Exposure during pregnancy [Unknown]
